FAERS Safety Report 18679419 (Version 1)
Quarter: 2020Q4

REPORT INFORMATION
  Report Type: Spontaneous
  Country: US (occurrence: US)
  Receive Date: 20201230
  Receipt Date: 20201230
  Transmission Date: 20210114
  Serious: Yes (Death, Hospitalization, Other)
  Sender: FDA-Public Use
  Company Number: US-AUROBINDO-AUR-APL-2010-02332

PATIENT
  Age: 52 Year
  Sex: Female

DRUGS (2)
  1. CEFUROXIME. [Suspect]
     Active Substance: CEFUROXIME
     Indication: LYME DISEASE
     Dosage: UNK
     Route: 048
  2. TELITHROMYCIN [Suspect]
     Active Substance: TELITHROMYCIN
     Indication: LYME DISEASE
     Dosage: UNK
     Route: 065

REACTIONS (5)
  - Abdominal pain [Fatal]
  - Clostridium difficile colitis [Fatal]
  - Cardiac arrest [Fatal]
  - Diarrhoea [Fatal]
  - Ascites [Unknown]
